FAERS Safety Report 16262622 (Version 5)
Quarter: 2021Q3

REPORT INFORMATION
  Report Type: Spontaneous
  Country: US (occurrence: US)
  Receive Date: 20190502
  Receipt Date: 20210706
  Transmission Date: 20211014
  Serious: Yes (Other)
  Sender: FDA-Public Use
  Company Number: US-TAKEDA-2019TUS025358

PATIENT
  Age: 81 Year
  Sex: Female
  Weight: 63.04 kg

DRUGS (1)
  1. NINLARO [Suspect]
     Active Substance: IXAZOMIB CITRATE
     Indication: PLASMA CELL MYELOMA
     Dosage: 2.3 MILLIGRAM
     Route: 048
     Dates: start: 20180507

REACTIONS (15)
  - Urinary tract infection [Unknown]
  - Dehydration [Unknown]
  - Illness [Unknown]
  - Fatigue [Unknown]
  - Malaise [Unknown]
  - Neuropathy peripheral [Recovering/Resolving]
  - Bone pain [Unknown]
  - Nephrolithiasis [Unknown]
  - Alopecia [Unknown]
  - Upper respiratory tract infection [Unknown]
  - Dysarthria [Unknown]
  - Cholelithiasis [Unknown]
  - Off label use [Unknown]
  - Asthenia [Unknown]
  - Dizziness [Unknown]

NARRATIVE: CASE EVENT DATE: 20210612
